FAERS Safety Report 20200218 (Version 1)
Quarter: 2021Q4

REPORT INFORMATION
  Report Type: Spontaneous
  Country: US (occurrence: None)
  Receive Date: 20211217
  Receipt Date: 20211217
  Transmission Date: 20220303
  Serious: Yes (Other)
  Sender: FDA-Public Use
  Company Number: None

PATIENT
  Age: 48 Year
  Sex: Female
  Weight: 54.9 kg

DRUGS (1)
  1. LEVOTHYROXINE [Suspect]
     Active Substance: LEVOTHYROXINE
     Indication: Post procedural hypothyroidism
     Dosage: OTHER QUANTITY : 0.175MG;?FREQUENCY : DAILY;?
     Route: 048
     Dates: start: 20200101, end: 20200201

REACTIONS (5)
  - Lethargy [None]
  - Malaise [None]
  - Cystitis interstitial [None]
  - Reaction to excipient [None]
  - Condition aggravated [None]

NARRATIVE: CASE EVENT DATE: 20200101
